FAERS Safety Report 19659801 (Version 1)
Quarter: 2021Q3

REPORT INFORMATION
  Report Type: Spontaneous
  Country: JP (occurrence: JP)
  Receive Date: 20210805
  Receipt Date: 20210805
  Transmission Date: 20211014
  Serious: Yes (Hospitalization)
  Sender: FDA-Public Use
  Company Number: JP-ASTELLAS-2021JP015114

PATIENT
  Sex: Male

DRUGS (4)
  1. CASODEX [Concomitant]
     Active Substance: BICALUTAMIDE
     Indication: PRODUCT USED FOR UNKNOWN INDICATION
     Route: 048
  2. XTANDI [Suspect]
     Active Substance: ENZALUTAMIDE
     Route: 048
     Dates: start: 20210617
  3. GONAX [Suspect]
     Active Substance: DEGARELIX
     Indication: PRODUCT USED FOR UNKNOWN INDICATION
     Dosage: UNK UNK, UNKNOWN FREQ.
     Route: 065
     Dates: start: 20210617, end: 20210617
  4. XTANDI [Suspect]
     Active Substance: ENZALUTAMIDE
     Indication: PRODUCT USED FOR UNKNOWN INDICATION
     Route: 048
     Dates: start: 20210422, end: 202106

REACTIONS (9)
  - Abdominal pain lower [Unknown]
  - Abdominal distension [Unknown]
  - Prostatic specific antigen increased [Unknown]
  - Malaise [Unknown]
  - Product administration interrupted [Unknown]
  - Pyrexia [Unknown]
  - Cough [Unknown]
  - Cognitive disorder [Unknown]
  - Dizziness [Unknown]

NARRATIVE: CASE EVENT DATE: 202104
